FAERS Safety Report 9750014 (Version 2)
Quarter: 2013Q4

REPORT INFORMATION
  Report Type: Spontaneous
  Country: DE (occurrence: DE)
  Receive Date: 20131212
  Receipt Date: 20131212
  Transmission Date: 20140711
  Serious: No
  Sender: FDA-Public Use
  Company Number: DE-GILEAD-DE-CVT-090556

PATIENT
  Age: 50 Year
  Sex: Male

DRUGS (5)
  1. RANEXA [Suspect]
     Indication: MYOCARDIAL ISCHAEMIA
     Route: 048
     Dates: start: 20090713, end: 20090715
  2. INEGY [Concomitant]
  3. ASS [Concomitant]
  4. ISCOVER [Concomitant]
  5. ISOKET [Concomitant]

REACTIONS (2)
  - Nausea [Recovered/Resolved]
  - Dizziness [Recovered/Resolved]
